FAERS Safety Report 4492887-1 (Version None)
Quarter: 2004Q4

REPORT INFORMATION
  Report Type: 
  Country: None (occurrence: None)
  Receive Date: 20041104
  Receipt Date: 20041028
  Transmission Date: 20050328
  Serious: Yes (Other)
  Sender: FDA-Public Use
  Company Number: GB-BRISTOL-MYERS SQUIBB COMPANY-12747275

PATIENT
  Age: 55 Year
  Sex: Male
  Weight: 85 kg

DRUGS (8)
  1. SUSTIVA [Suspect]
     Indication: HIV INFECTION
     Dosage: NIGHTLY
     Route: 048
     Dates: end: 20031101
  2. LIPITOR [Interacting]
     Route: 048
     Dates: end: 20040624
  3. ZERIT [Concomitant]
     Indication: HIV INFECTION
     Route: 048
     Dates: start: 20031101
  4. VIREAD [Concomitant]
     Indication: HIV INFECTION
     Route: 048
     Dates: start: 20031101
  5. ATENOLOL [Concomitant]
     Route: 048
     Dates: start: 20030501
  6. CLOPIDOGREL BISULFATE [Concomitant]
     Route: 048
  7. AMLODIPINE [Concomitant]
  8. NICORANDIL [Concomitant]

REACTIONS (5)
  - BLOOD CREATINE PHOSPHOKINASE INCREASED [None]
  - DRUG INTERACTION [None]
  - MUSCLE CRAMP [None]
  - MYALGIA [None]
  - MYOSITIS [None]
